FAERS Safety Report 9525643 (Version 3)
Quarter: 2013Q3

REPORT INFORMATION
  Report Type: Report from Study
  Country: GB (occurrence: GB)
  Receive Date: 20130916
  Receipt Date: 20130924
  Transmission Date: 20140515
  Serious: Yes (Hospitalization)
  Sender: FDA-Public Use
  Company Number: GB-ABBVIE-13P-167-1082444-00

PATIENT
  Age: 33 Year
  Sex: Female
  Weight: 59 kg

DRUGS (7)
  1. HUMIRA [Suspect]
     Indication: COLITIS ULCERATIVE
     Route: 058
     Dates: start: 20120911, end: 20130226
  2. B12 [Concomitant]
     Indication: ANAEMIA
     Route: 030
     Dates: start: 20070716
  3. CIPRALEX [Concomitant]
     Indication: PANIC REACTION
     Route: 048
     Dates: start: 201003
  4. CIPRALEX [Concomitant]
     Indication: ANXIETY
  5. DERMOL [Concomitant]
     Indication: PSORIASIS
     Route: 062
     Dates: start: 20040530, end: 20130227
  6. DOUBLEBASE [Concomitant]
     Indication: PSORIASIS
     Route: 061
     Dates: start: 20120830
  7. DIFFEREN GEL [Concomitant]
     Indication: ACNE
     Route: 061
     Dates: start: 20121127

REACTIONS (1)
  - Colitis ulcerative [Recovered/Resolved]
